FAERS Safety Report 7328640-0 (Version None)
Quarter: 2011Q1

REPORT INFORMATION
  Report Type: 
  Country: None (occurrence: None)
  Receive Date: 20110303
  Receipt Date: 20110228
  Transmission Date: 20110831
  Serious: Yes (Hospitalization, Other)
  Sender: FDA-Public Use
  Company Number: US-PFIZER INC-2010072329

PATIENT
  Sex: Male

DRUGS (7)
  1. HUMIRA [Concomitant]
     Dosage: UNK
     Dates: start: 20071127, end: 20080502
  2. ENALAPRIL [Concomitant]
     Indication: BLOOD PRESSURE
     Dosage: UNK
     Dates: start: 20080114
  3. DESONIDE [Concomitant]
     Dosage: UNK
     Dates: start: 20071110, end: 20080708
  4. ZOLPIDEM TARTRATE [Concomitant]
     Indication: SLEEP DISORDER
     Dosage: UNK
     Dates: start: 20080114, end: 20080426
  5. CHANTIX [Suspect]
     Indication: SMOKING CESSATION THERAPY
     Dosage: 1 MG, UNK
     Dates: start: 20071128, end: 20080114
  6. SIMVASTATIN [Concomitant]
     Indication: BLOOD CHOLESTEROL
     Dosage: UNK
     Dates: start: 20071026
  7. SULFAMETHOXAZOLE [Concomitant]
     Dosage: UNK
     Dates: start: 20070510, end: 20091123

REACTIONS (2)
  - DEPRESSION [None]
  - SUICIDAL IDEATION [None]
